FAERS Safety Report 8958254 (Version 1)
Quarter: 2012Q4

REPORT INFORMATION
  Report Type: Report from Study
  Country: CA (occurrence: CA)
  Receive Date: 20121211
  Receipt Date: 20121211
  Transmission Date: 20130627
  Serious: Yes (Death)
  Sender: FDA-Public Use
  Company Number: CA-ROCHE-1166125

PATIENT
  Sex: Female
  Weight: 62.2 kg

DRUGS (3)
  1. BEVACIZUMAB [Suspect]
     Indication: GLIOBLASTOMA
     Route: 042
     Dates: start: 2010, end: 2010
  2. DEXAMETHASONE [Concomitant]
  3. KEPPRA [Concomitant]

REACTIONS (1)
  - Death [Fatal]
